FAERS Safety Report 4700558-9 (Version None)
Quarter: 2005Q2

REPORT INFORMATION
  Report Type: 
  Country: None (occurrence: None)
  Receive Date: 20050627
  Receipt Date: 20050627
  Transmission Date: 20051028
  Serious: No
  Sender: FDA-Public Use
  Company Number: None

PATIENT
  Age: 93 Year
  Sex: Female

DRUGS (1)
  1. FLOMAX [Suspect]

REACTIONS (2)
  - IRIS DISORDER [None]
  - PROCEDURAL COMPLICATION [None]
